FAERS Safety Report 24784819 (Version 1)
Quarter: 2024Q4

REPORT INFORMATION
  Report Type: Spontaneous
  Country: US (occurrence: US)
  Receive Date: 20241228
  Receipt Date: 20241228
  Transmission Date: 20250114
  Serious: No
  Sender: BRISTOL-MYERS SQUIBB COMPANY
  Company Number: US-BRISTOL-MYERS SQUIBB COMPANY-2024-199616

PATIENT
  Age: 47 Year
  Sex: Male

DRUGS (10)
  1. THALIDOMIDE [Suspect]
     Active Substance: THALIDOMIDE
     Indication: Pyoderma gangrenosum
     Route: 048
  2. THALIDOMIDE [Suspect]
     Active Substance: THALIDOMIDE
     Dosage: OVER 3 WEEKS
     Route: 048
  3. THALIDOMIDE [Suspect]
     Active Substance: THALIDOMIDE
     Dosage: OVER 3 WEEKS
     Route: 048
  4. PREDNISONE [Concomitant]
     Active Substance: PREDNISONE
     Indication: Pyoderma gangrenosum
  5. PREDNISONE [Concomitant]
     Active Substance: PREDNISONE
     Route: 048
  6. PREDNISONE [Concomitant]
     Active Substance: PREDNISONE
  7. DAPSONE [Concomitant]
     Active Substance: DAPSONE
     Indication: Pyoderma gangrenosum
  8. DAPSONE [Concomitant]
     Active Substance: DAPSONE
  9. DAPSONE [Concomitant]
     Active Substance: DAPSONE
  10. DAPSONE [Concomitant]
     Active Substance: DAPSONE
     Dosage: 100-125 MG
     Route: 048

REACTIONS (3)
  - Tremor [Unknown]
  - Tachycardia [Unknown]
  - Off label use [Unknown]
